FAERS Safety Report 21976193 (Version 1)
Quarter: 2023Q1

REPORT INFORMATION
  Report Type: Spontaneous
  Country: GB (occurrence: GB)
  Receive Date: 20230210
  Receipt Date: 20230210
  Transmission Date: 20230418
  Serious: Yes (Other)
  Sender: FDA-Public Use
  Company Number: GB-MHRA-MED-202302011640426640-WSJBC

PATIENT
  Age: 68 Year
  Sex: Male
  Weight: 76 kg

DRUGS (1)
  1. MODAFINIL [Suspect]
     Active Substance: MODAFINIL
     Indication: Hypersomnia
     Dosage: 100 MILLIGRAM, TWO TIMES A DAY (100MG BD)
     Route: 065
     Dates: start: 2022

REACTIONS (1)
  - Lip pain [Recovered/Resolved]

NARRATIVE: CASE EVENT DATE: 20221001
